FAERS Safety Report 20142974 (Version 1)
Quarter: 2021Q4

REPORT INFORMATION
  Report Type: Spontaneous
  Country: CN (occurrence: CN)
  Receive Date: 20211202
  Receipt Date: 20211202
  Transmission Date: 20220303
  Serious: Yes (Other)
  Sender: FDA-Public Use
  Company Number: CN-009507513-2111CHN009391

PATIENT
  Age: 50 Year
  Sex: Male
  Weight: 62.5 kg

DRUGS (1)
  1. CILASTATIN SODIUM\IMIPENEM [Suspect]
     Active Substance: CILASTATIN SODIUM\IMIPENEM
     Indication: Lung abscess
     Dosage: 1 GRAM, Q8H
     Route: 041
     Dates: start: 20211031, end: 20211031

REACTIONS (4)
  - Dysphoria [Recovering/Resolving]
  - Aggression [Recovering/Resolving]
  - Mental disorder [Recovering/Resolving]
  - Refusal of treatment by patient [Recovering/Resolving]

NARRATIVE: CASE EVENT DATE: 20211031
